FAERS Safety Report 6941966-5 (Version None)
Quarter: 2010Q3

REPORT INFORMATION
  Report Type: 
  Country: None (occurrence: None)
  Receive Date: 20100826
  Receipt Date: 20100812
  Transmission Date: 20110219
  Serious: Yes (Other)
  Sender: FDA-Public Use
  Company Number: AU-RANBAXY-2010RR-36347

PATIENT
  Age: 13 Year
  Sex: Female
  Weight: 45 kg

DRUGS (2)
  1. IBUPROFEN [Suspect]
     Dosage: 400 MG, TID
     Route: 048
  2. PARACETAMOL [Concomitant]
     Indication: TENDONITIS
     Dosage: 1 G, QID

REACTIONS (1)
  - SINUS ARRHYTHMIA [None]
